FAERS Safety Report 4504304-3 (Version None)
Quarter: 2004Q4

REPORT INFORMATION
  Report Type: 
  Country: None (occurrence: None)
  Receive Date: 20041116
  Receipt Date: 20041104
  Transmission Date: 20050328
  Serious: Yes (Hospitalization)
  Sender: FDA-Public Use
  Company Number: 2004088149

PATIENT
  Age: 44 Year
  Sex: Female
  Weight: 77.1115 kg

DRUGS (2)
  1. UNISOM [Suspect]
     Indication: SUICIDE ATTEMPT
     Dosage: 16 TABLETS AT ONCE, ORAL
     Route: 048
     Dates: start: 20041104, end: 20041104
  2. FLUOXETINE HYDROCHLORIDE [Concomitant]

REACTIONS (2)
  - INTENTIONAL OVERDOSE [None]
  - SUICIDE ATTEMPT [None]
